FAERS Safety Report 9735937 (Version 1)
Quarter: 2013Q4

REPORT INFORMATION
  Report Type: Spontaneous
  Country: US (occurrence: None)
  Receive Date: 20131204
  Receipt Date: 20131204
  Transmission Date: 20140711
  Serious: Yes (Other)
  Sender: FDA-Public Use
  Company Number: 2013P1021523

PATIENT
  Age: 49 Year
  Sex: Female

DRUGS (1)
  1. INFUMORPH [Suspect]
     Indication: POST LAMINECTOMY SYNDROME

REACTIONS (3)
  - Drug ineffective [None]
  - Device breakage [None]
  - Device occlusion [None]
